FAERS Safety Report 13610188 (Version 1)
Quarter: 2017Q2

REPORT INFORMATION
  Report Type: Spontaneous
  Country: DE (occurrence: DE)
  Receive Date: 20170604
  Receipt Date: 20170604
  Transmission Date: 20170830
  Serious: Yes (Other)
  Sender: FDA-Public Use
  Company Number: DE-MYLANLABS-2017M1032414

PATIENT

DRUGS (11)
  1. TAVOR (LORAZEPAM) [Suspect]
     Active Substance: LORAZEPAM
     Dosage: 4 - 0.5 MG/D
     Route: 048
     Dates: start: 20160920, end: 20160929
  2. QUETIAPINE. [Suspect]
     Active Substance: QUETIAPINE
     Dosage: 400 MG, UNK
     Route: 048
     Dates: end: 20160920
  3. CIPRALEX [Suspect]
     Active Substance: ESCITALOPRAM OXALATE
     Route: 048
     Dates: end: 20160921
  4. MOVICOL [Concomitant]
     Active Substance: POLYETHYLENE GLYCOL 3350\POTASSIUM CHLORIDE\SODIUM BICARBONATE\SODIUM CHLORIDE
     Route: 048
  5. QUETIAPINE. [Suspect]
     Active Substance: QUETIAPINE
     Dosage: 7000 MG, UNK
     Route: 048
     Dates: start: 20160926
  6. QUETIAPIN [Suspect]
     Active Substance: QUETIAPINE
     Route: 048
     Dates: end: 20160914
  7. L-THYROXIN [Concomitant]
     Active Substance: LEVOTHYROXINE SODIUM
     Route: 048
     Dates: start: 20160915
  8. BELOC ZOK [Concomitant]
     Active Substance: METOPROLOL SUCCINATE
     Route: 048
  9. TAVOR (LORAZEPAM) [Suspect]
     Active Substance: LORAZEPAM
     Dosage: 2 MG, UNK
     Route: 048
     Dates: start: 20160908, end: 20160919
  10. CANDESARTAN. [Concomitant]
     Active Substance: CANDESARTAN
     Route: 048
  11. QUILONUM [Suspect]
     Active Substance: LITHIUM CARBONATE
     Route: 048
     Dates: start: 20160201

REACTIONS (1)
  - Delirium [Recovered/Resolved]

NARRATIVE: CASE EVENT DATE: 20160912
